FAERS Safety Report 6806164-4 (Version None)
Quarter: 2010Q2

REPORT INFORMATION
  Report Type: 
  Country: None (occurrence: None)
  Receive Date: 20100629
  Receipt Date: 20071227
  Transmission Date: 20101027
  Serious: No
  Sender: FDA-Public Use
  Company Number: US-PFIZER INC-2008000495

PATIENT
  Sex: Male
  Weight: 71.818 kg

DRUGS (11)
  1. VIAGRA [Suspect]
     Indication: ERECTILE DYSFUNCTION
     Dosage: 50MG PRN
     Route: 048
     Dates: start: 20060101
  2. AVODART [Concomitant]
  3. UROXATRAL [Concomitant]
  4. ALL OTHER THERAPEUTIC PRODUCTS [Concomitant]
  5. ACETYLSALICYLIC ACID [Concomitant]
  6. VITAMINS [Concomitant]
  7. CALCIUM CARBONATE [Concomitant]
  8. CHONDROITIN/GLUCOSAMINE [Concomitant]
  9. XALATAN [Concomitant]
  10. MOMETASONE FUROATE [Concomitant]
  11. PROCTOFOAM HC [Concomitant]

REACTIONS (1)
  - DYSPAREUNIA [None]
